FAERS Safety Report 14691977 (Version 1)
Quarter: 2018Q1

REPORT INFORMATION
  Report Type: Spontaneous
  Country: US (occurrence: US)
  Receive Date: 20180329
  Receipt Date: 20180329
  Transmission Date: 20180509
  Serious: Yes (Other)
  Sender: FDA-Public Use
  Company Number: US-ROCHE-2092283

PATIENT
  Age: 68 Year
  Sex: Female

DRUGS (1)
  1. ERIVEDGE [Suspect]
     Active Substance: VISMODEGIB
     Indication: BASAL CELL NAEVUS SYNDROME
     Dosage: 150 MG ONCE DAY ;ONGOING: NO
     Route: 048

REACTIONS (2)
  - Aneurysm [Unknown]
  - Visual impairment [Unknown]
